FAERS Safety Report 5621194-6 (Version None)
Quarter: 2008Q1

REPORT INFORMATION
  Report Type: 
  Country: None (occurrence: None)
  Receive Date: 20080114
  Receipt Date: 20061127
  Transmission Date: 20080703
  Serious: Yes (Other)
  Sender: FDA-Public Use
  Company Number: A03200607519

PATIENT
  Sex: Male
  Weight: 93.8946 kg

DRUGS (6)
  1. PLAVIX [Suspect]
     Indication: CAROTID ARTERY OCCLUSION
     Dosage: 75 MG QD - ORAL
     Route: 048
     Dates: start: 20031001
  2. PLAVIX [Suspect]
     Indication: CAROTID ARTERY OCCLUSION
     Dosage: 75 MG QD - ORAL
     Route: 048
  3. METOPROLOL SUCCINATE [Concomitant]
  4. ATORVASTATIN CALCIUM [Concomitant]
  5. EZETIMIBE [Concomitant]
  6. ACETYLSALICYLIC ACID SRT [Concomitant]

REACTIONS (4)
  - ARTERIAL OCCLUSIVE DISEASE [None]
  - DRUG INEFFECTIVE [None]
  - HAEMORRHAGE [None]
  - INCREASED TENDENCY TO BRUISE [None]
